FAERS Safety Report 7596990-9 (Version None)
Quarter: 2011Q3

REPORT INFORMATION
  Report Type: 
  Country: None (occurrence: None)
  Receive Date: 20110708
  Receipt Date: 20110706
  Transmission Date: 20111222
  Serious: Yes (Disabling)
  Sender: FDA-Public Use
  Company Number: GB-BRISTOL-MYERS SQUIBB COMPANY-15877418

PATIENT
  Age: 29 Year
  Sex: Female

DRUGS (5)
  1. DAUNORUBICIN HCL [Suspect]
  2. CYTARABINE [Suspect]
  3. PIPERACILLIN AND TAZOBACTAM [Concomitant]
  4. GENTAMICIN [Concomitant]
  5. ETOPOSIDE [Suspect]
     Indication: MYELOID LEUKAEMIA
     Dosage: 3 DAYS
     Route: 042

REACTIONS (2)
  - ENTEROCOLITIS HAEMORRHAGIC [None]
  - DIARRHOEA HAEMORRHAGIC [None]
